FAERS Safety Report 4546814-9 (Version None)
Quarter: 2005Q1

REPORT INFORMATION
  Report Type: 
  Country: None (occurrence: None)
  Receive Date: 20050105
  Receipt Date: 20041224
  Transmission Date: 20050727
  Serious: Yes (Other)
  Sender: FDA-Public Use
  Company Number: 2004118000

PATIENT
  Age: 10 Year
  Sex: Female

DRUGS (1)
  1. SOMATROPIN POWDER, STERILE (SOMATROPIN) [Suspect]
     Indication: TURNER'S SYNDROME
     Dosage: SUBCUTANEOUS
     Route: 058
     Dates: start: 19940610

REACTIONS (1)
  - HEPATIC STEATOSIS [None]
